FAERS Safety Report 5316024-6 (Version None)
Quarter: 2007Q2

REPORT INFORMATION
  Report Type: 
  Country: None (occurrence: None)
  Receive Date: 20070503
  Receipt Date: 20070426
  Transmission Date: 20071010
  Serious: Yes (Hospitalization)
  Sender: FDA-Public Use
  Company Number: IT-SANOFI-SYNTHELABO-F01200700547

PATIENT
  Sex: Female

DRUGS (10)
  1. CONCOMITANT DRUG [Concomitant]
     Dates: start: 19860615
  2. LANSOX [Concomitant]
     Dates: start: 20070215
  3. DURAGESIC-100 [Concomitant]
     Dates: start: 20070221
  4. PARIET [Concomitant]
     Dates: start: 20050615
  5. DECADRON [Concomitant]
     Dates: start: 20061026
  6. KYTRIL [Concomitant]
     Dates: start: 20061026
  7. MOTILEX [Concomitant]
     Dates: start: 20050615
  8. CAPECITABINE [Suspect]
     Dosage: 14X PER 4 WEEK 1500 MG
     Dates: start: 20061026, end: 20070228
  9. BEVACIZUMAB [Suspect]
     Dosage: 300 MG
     Route: 042
     Dates: start: 20070301, end: 20070301
  10. OXALIPLATIN [Suspect]
     Indication: COLORECTAL CANCER
     Dosage: 64 MG
     Route: 042
     Dates: start: 20070315, end: 20070315

REACTIONS (1)
  - SYNCOPE [None]
